FAERS Safety Report 4314729-7 (Version None)
Quarter: 2004Q1

REPORT INFORMATION
  Report Type: 
  Country: None (occurrence: None)
  Receive Date: 20040308
  Receipt Date: 20040227
  Transmission Date: 20041129
  Serious: Yes (Life-Threatening)
  Sender: FDA-Public Use
  Company Number: 2004US000238

PATIENT
  Age: 26 Year
  Sex: Female

DRUGS (10)
  1. AMBISOME [Suspect]
     Indication: FEBRILE NEUTROPENIA
     Dosage: 300.00 MG, UID/QD, INTRAVENOUS
     Route: 042
  2. AMBISOME [Suspect]
     Indication: SYSTEMIC MYCOSIS
     Dosage: 300.00 MG, UID/QD, INTRAVENOUS
     Route: 042
  3. AMIKACIN [Concomitant]
  4. OMEPRAZOLE [Concomitant]
  5. OCTREOTIDE ACETATE [Concomitant]
  6. GRANULOCYTE COLONY STIMULATIN FACTOR (GRANULOCYTE COLONY STIMULATING F [Concomitant]
  7. ERYTHROPROTEIN (ERYTHROPROTEIN) [Concomitant]
  8. VANCOMYCIN [Concomitant]
  9. CIPROFLOXACIN (CIOPROFLOXACIN) [Concomitant]
  10. METRONIDAZOLE [Concomitant]

REACTIONS (6)
  - CHEST PAIN [None]
  - DYSPNOEA [None]
  - ERYTHEMA [None]
  - FEELING ABNORMAL [None]
  - HOARSENESS [None]
  - INFUSION RELATED REACTION [None]
